FAERS Safety Report 9020665 (Version 1)
Quarter: 2013Q1

REPORT INFORMATION
  Report Type: Spontaneous
  Country: US (occurrence: US)
  Receive Date: 20130119
  Receipt Date: 20130119
  Transmission Date: 20140127
  Serious: No
  Sender: FDA-Public Use
  Company Number: US-ALLERGAN-1206497US

PATIENT
  Age: 28 Year
  Sex: Female

DRUGS (1)
  1. BOTOX COSMETIC [Suspect]
     Indication: SKIN WRINKLING
     Dosage: 16 UNITS, SINGLE
     Route: 030
     Dates: start: 20120505, end: 20120505

REACTIONS (8)
  - Tinnitus [Recovering/Resolving]
  - Hypoacusis [Recovering/Resolving]
  - Dissociation [Not Recovered/Not Resolved]
  - Anxiety [Recovering/Resolving]
  - Headache [Recovered/Resolved]
  - Malaise [Recovering/Resolving]
  - Facial paresis [Recovering/Resolving]
  - Nausea [Recovering/Resolving]
